FAERS Safety Report 6608617-0 (Version None)
Quarter: 2010Q1

REPORT INFORMATION
  Report Type: 
  Country: None (occurrence: None)
  Receive Date: 20100226
  Receipt Date: 20100226
  Transmission Date: 20100710
  Serious: No
  Sender: FDA-Public Use
  Company Number: None

PATIENT
  Age: 24 Year
  Sex: Male
  Weight: 86.1834 kg

DRUGS (6)
  1. CLONAZEPAM [Suspect]
     Dosage: 1MG PO
     Route: 048
     Dates: start: 20081212, end: 20081223
  2. COGENTIN [Concomitant]
  3. ATROPINE SULFATE [Concomitant]
  4. FLUPHENAZINE [Concomitant]
  5. ASPIRIN [Concomitant]
  6. CLOZAPINE [Concomitant]

REACTIONS (3)
  - ATAXIA [None]
  - DROOLING [None]
  - SEDATION [None]
